FAERS Safety Report 5827360-9 (Version None)
Quarter: 2008Q3

REPORT INFORMATION
  Report Type: 
  Country: None (occurrence: None)
  Receive Date: 20080730
  Receipt Date: 20080728
  Transmission Date: 20090109
  Serious: Yes (Hospitalization, Other)
  Sender: FDA-Public Use
  Company Number: FR-BRISTOL-MYERS SQUIBB COMPANY-14280200

PATIENT
  Age: 81 Year
  Sex: Female

DRUGS (5)
  1. COAPROVEL TABS 150MG/12.5MG [Suspect]
     Indication: HYPERTENSION
     Dates: end: 20080617
  2. FLECAINIDE ACETATE [Suspect]
     Indication: ATRIAL FIBRILLATION
     Dates: start: 20070701, end: 20080626
  3. CYCLO 3 [Concomitant]
  4. CALPEROS [Concomitant]
     Dosage: DISCHARGED WITH DOSE OF 500MG
  5. ZOLPIDEM [Concomitant]

REACTIONS (8)
  - ATRIOVENTRICULAR BLOCK [None]
  - FALL [None]
  - HYPONATRAEMIA [None]
  - MALAISE [None]
  - ORTHOSTATIC HYPOTENSION [None]
  - PARAESTHESIA [None]
  - PELVIC FRACTURE [None]
  - VENTRICULAR EXTRASYSTOLES [None]
